FAERS Safety Report 7825192-3 (Version None)
Quarter: 2011Q4

REPORT INFORMATION
  Report Type: 
  Country: None (occurrence: None)
  Receive Date: 20111019
  Receipt Date: 20111013
  Transmission Date: 20120403
  Serious: Yes (Hospitalization, Other)
  Sender: FDA-Public Use
  Company Number: JP-PFIZER INC-2011187540

PATIENT
  Age: 75 Year
  Sex: Female

DRUGS (2)
  1. ZYVOX [Suspect]
     Indication: ARTHRITIS
     Dosage: 1200 MG, 1X/DAY
     Route: 041
     Dates: start: 20110809
  2. ZYVOX [Suspect]
     Dosage: UNK
     Dates: end: 20111002

REACTIONS (5)
  - RENAL IMPAIRMENT [None]
  - VOMITING [None]
  - GASTROOESOPHAGEAL REFLUX DISEASE [None]
  - ANAEMIA [None]
  - ABDOMINAL PAIN [None]
